FAERS Safety Report 23997938 (Version 1)
Quarter: 2024Q2

REPORT INFORMATION
  Report Type: Report from Study
  Country: US (occurrence: US)
  Receive Date: 20240621
  Receipt Date: 20240621
  Transmission Date: 20240717
  Serious: Yes (Hospitalization, Other)
  Sender: FDA-Public Use
  Company Number: US-GILEAD-2024-0677876

PATIENT
  Sex: Female

DRUGS (3)
  1. AMBRISENTAN [Suspect]
     Active Substance: AMBRISENTAN
     Indication: Pulmonary hypertension
     Dosage: 5 MG, QD
     Route: 065
     Dates: start: 20220413
  2. XARELTO [Concomitant]
     Active Substance: RIVAROXABAN
  3. ADCIRCA [Concomitant]
     Active Substance: TADALAFIL

REACTIONS (7)
  - Rales [Unknown]
  - Dementia [Unknown]
  - Dyspnoea [Unknown]
  - Weight decreased [Unknown]
  - Anxiety [Unknown]
  - Fatigue [Unknown]
  - Hypophagia [Unknown]
